FAERS Safety Report 8405300-6 (Version None)
Quarter: 2012Q2

REPORT INFORMATION
  Report Type: 
  Country: None (occurrence: None)
  Receive Date: 20120604
  Receipt Date: 20120529
  Transmission Date: 20120825
  Serious: Yes (Hospitalization)
  Sender: FDA-Public Use
  Company Number: US-AMGEN-USASP2012033569

PATIENT
  Age: 48 Year
  Sex: Female

DRUGS (1)
  1. ENBREL [Suspect]
     Indication: PSORIATIC ARTHROPATHY
     Dosage: 50 MG, QWK
     Dates: start: 20100402, end: 20120101

REACTIONS (11)
  - TYPE 2 DIABETES MELLITUS [None]
  - GAIT DISTURBANCE [None]
  - EXOSTOSIS [None]
  - FOOT DEFORMITY [None]
  - OSTEOARTHRITIS [None]
  - TRISMUS [None]
  - PSORIATIC ARTHROPATHY [None]
  - FINGER DEFORMITY [None]
  - JOINT SWELLING [None]
  - JOINT STIFFNESS [None]
  - MUSCULAR WEAKNESS [None]
